FAERS Safety Report 5722135-3 (Version None)
Quarter: 2008Q2

REPORT INFORMATION
  Report Type: 
  Country: None (occurrence: None)
  Receive Date: 20080429
  Receipt Date: 20070606
  Transmission Date: 20081010
  Serious: No
  Sender: FDA-Public Use
  Company Number: US-ASTRAZENECA-2007UW13625

PATIENT
  Sex: Male

DRUGS (2)
  1. NEXIUM [Suspect]
     Indication: ULCER
     Route: 048
  2. LIPITOR [Concomitant]

REACTIONS (2)
  - ANAEMIA [None]
  - ERECTILE DYSFUNCTION [None]
